FAERS Safety Report 13422421 (Version 1)
Quarter: 2017Q2

REPORT INFORMATION
  Report Type: Spontaneous
  Country: US (occurrence: US)
  Receive Date: 20170409
  Receipt Date: 20170409
  Transmission Date: 20170830
  Serious: Yes (Other)
  Sender: FDA-Public Use
  Company Number: None

PATIENT
  Age: 50 Year
  Sex: Female
  Weight: 67.5 kg

DRUGS (7)
  1. ACTONEL [Suspect]
     Active Substance: RISEDRONATE SODIUM
     Indication: OSTEOPOROSIS
     Dosage: ?          QUANTITY:1 TABLET(S);OTHER FREQUENCY:MONTHLY;?
     Route: 048
     Dates: start: 20170407, end: 20170407
  2. SINGULAIR [Concomitant]
     Active Substance: MONTELUKAST SODIUM
  3. ZYRTEC [Concomitant]
     Active Substance: CETIRIZINE HYDROCHLORIDE
  4. MAGOX [Concomitant]
  5. METAPROLOL [Concomitant]
     Active Substance: METOPROLOL
  6. LEXAPRO [Concomitant]
     Active Substance: ESCITALOPRAM OXALATE
  7. ESTROGEN [Concomitant]
     Active Substance: ESTROGENS

REACTIONS (13)
  - Eructation [None]
  - Pain [None]
  - Paraesthesia oral [None]
  - Musculoskeletal stiffness [None]
  - Paraesthesia [None]
  - Diarrhoea [None]
  - Bedridden [None]
  - Dyspnoea [None]
  - Back pain [None]
  - Flatulence [None]
  - Arthralgia [None]
  - Nausea [None]
  - Pyrexia [None]

NARRATIVE: CASE EVENT DATE: 20170407
